FAERS Safety Report 24257141 (Version 1)
Quarter: 2024Q3

REPORT INFORMATION
  Report Type: Spontaneous
  Country: KW (occurrence: KW)
  Receive Date: 20240828
  Receipt Date: 20240828
  Transmission Date: 20241016
  Serious: Yes (Hospitalization, Other)
  Sender: RANBAXY
  Company Number: KW-SUN PHARMACEUTICAL INDUSTRIES LTD-2024R1-464587

PATIENT
  Age: 16 Year
  Sex: Male

DRUGS (2)
  1. PALIPERIDONE [Suspect]
     Active Substance: PALIPERIDONE
     Indication: Schizoaffective disorder
     Dosage: 100 MILLIGRAM Q 4 WEEKS
     Route: 030
  2. PALIPERIDONE [Suspect]
     Active Substance: PALIPERIDONE
     Dosage: 75 MILLIGRAM Q 4WEEKS
     Route: 030

REACTIONS (2)
  - Therapy partial responder [Unknown]
  - Pelvic floor dysfunction [Unknown]
